FAERS Safety Report 13349191 (Version 3)
Quarter: 2017Q2

REPORT INFORMATION
  Report Type: Report from Study
  Country: US (occurrence: US)
  Receive Date: 20170320
  Receipt Date: 20170503
  Transmission Date: 20170830
  Serious: Yes (Hospitalization, Other)
  Sender: FDA-Public Use
  Company Number: US-GILEAD-2017-0260508

PATIENT
  Age: 87 Year
  Sex: Male

DRUGS (14)
  1. AMBRISENTAN [Suspect]
     Active Substance: AMBRISENTAN
     Indication: CARDIAC FAILURE CHRONIC
  2. DIGOXIN. [Concomitant]
     Active Substance: DIGOXIN
  3. COREG [Concomitant]
     Active Substance: CARVEDILOL
  4. LASIX [Concomitant]
     Active Substance: FUROSEMIDE
  5. ASPIRIN                            /00002701/ [Concomitant]
     Active Substance: ASPIRIN
  6. AMIODARONE [Concomitant]
     Active Substance: AMIODARONE
  7. ATORVASTATIN [Concomitant]
     Active Substance: ATORVASTATIN
  8. ISOSORBIDE. [Concomitant]
     Active Substance: ISOSORBIDE
  9. IMDUR [Concomitant]
     Active Substance: ISOSORBIDE MONONITRATE
  10. AMBRISENTAN [Suspect]
     Active Substance: AMBRISENTAN
     Indication: PULMONARY HYPERTENSION
     Dosage: 5 MG, QD
     Route: 065
     Dates: start: 20160519
  11. LISINOPRIL. [Concomitant]
     Active Substance: LISINOPRIL
  12. AMBRISENTAN [Suspect]
     Active Substance: AMBRISENTAN
     Indication: HYPERLIPIDAEMIA
  13. AMBRISENTAN [Suspect]
     Active Substance: AMBRISENTAN
     Indication: HYPERTENSION
  14. PLAVIX [Concomitant]
     Active Substance: CLOPIDOGREL BISULFATE

REACTIONS (2)
  - Pulmonary oedema [Recovering/Resolving]
  - Pneumonia [Recovering/Resolving]
